APPROVED DRUG PRODUCT: CEFTAZIDIME IN DEXTROSE CONTAINER
Active Ingredient: CEFTAZIDIME
Strength: EQ 2GM BASE
Dosage Form/Route: INJECTABLE;INJECTION
Application: N050823 | Product #002
Applicant: B BRAUN MEDICAL INC
Approved: Jun 13, 2011 | RLD: Yes | RS: No | Type: DISCN